FAERS Safety Report 11186092 (Version 1)
Quarter: 2015Q2

REPORT INFORMATION
  Report Type: Spontaneous
  Country: AT (occurrence: AT)
  Receive Date: 20150612
  Receipt Date: 20150612
  Transmission Date: 20150821
  Serious: Yes (Other)
  Sender: FDA-Public Use
  Company Number: AT-ELI_LILLY_AND_COMPANY-AT201506001042

PATIENT
  Age: 53 Year
  Sex: Female

DRUGS (23)
  1. ZYPREXA [Suspect]
     Active Substance: OLANZAPINE
     Dosage: 15 DF, UNK
     Route: 065
     Dates: start: 20140501, end: 20140501
  2. DEPAKINE                           /00228502/ [Suspect]
     Active Substance: VALPROATE SODIUM
     Dosage: 2500 DF, UNK
     Route: 065
     Dates: start: 20140516, end: 20140519
  3. TEMESTA                            /00273201/ [Concomitant]
     Active Substance: LORAZEPAM
     Dosage: 2.5 DF, UNK
     Dates: start: 20140501, end: 20140501
  4. ZYPREXA [Suspect]
     Active Substance: OLANZAPINE
     Dosage: 20 DF, UNK
     Route: 065
     Dates: start: 20140502, end: 20140508
  5. TEMESTA                            /00273201/ [Concomitant]
     Active Substance: LORAZEPAM
     Dosage: 2.5 DF, UNK
     Dates: start: 20140519, end: 20140601
  6. RISPERDAL [Concomitant]
     Active Substance: RISPERIDONE
     Dosage: 4 DF, UNK
     Dates: start: 20140502
  7. DEPAKINE                           /00228502/ [Suspect]
     Active Substance: VALPROATE SODIUM
     Dosage: 2000 DF, UNK
     Route: 065
     Dates: start: 20140520
  8. ZYPREXA [Suspect]
     Active Substance: OLANZAPINE
     Indication: PRODUCT USED FOR UNKNOWN INDICATION
     Dosage: 30 DF, UNK
     Route: 065
     Dates: start: 20140430, end: 20140430
  9. DEPAKINE                           /00228502/ [Suspect]
     Active Substance: VALPROATE SODIUM
     Indication: PRODUCT USED FOR UNKNOWN INDICATION
     Dosage: 1500 DF, UNK
     Route: 065
     Dates: start: 20140430, end: 20140430
  10. TEMESTA                            /00273201/ [Concomitant]
     Active Substance: LORAZEPAM
     Dosage: 7.5 DF, UNK
     Dates: start: 20140430, end: 20140430
  11. TEMESTA                            /00273201/ [Concomitant]
     Active Substance: LORAZEPAM
     Dosage: 10 DF, UNK
     Dates: start: 20140502, end: 20140505
  12. TEMESTA                            /00273201/ [Concomitant]
     Active Substance: LORAZEPAM
     Dosage: 6.25 DF, UNK
     Dates: start: 20140508, end: 20140508
  13. TEMESTA                            /00273201/ [Concomitant]
     Active Substance: LORAZEPAM
     Dosage: 5 DF, UNK
     Dates: start: 20140509, end: 20140509
  14. TEMESTA                            /00273201/ [Concomitant]
     Active Substance: LORAZEPAM
     Dosage: 6.25 DF, UNK
     Dates: start: 20140510, end: 20140510
  15. TEMESTA                            /00273201/ [Concomitant]
     Active Substance: LORAZEPAM
     Dosage: 3.7 DF, UNK
     Dates: start: 20140512, end: 20140518
  16. RISPERDAL [Concomitant]
     Active Substance: RISPERIDONE
     Dosage: 2 DF, UNK
     Dates: start: 20140501, end: 20140501
  17. ZYPREXA [Suspect]
     Active Substance: OLANZAPINE
     Dosage: 10 DF, UNK
     Route: 065
     Dates: start: 20140509, end: 20140509
  18. TEMESTA                            /00273201/ [Concomitant]
     Active Substance: LORAZEPAM
     Dosage: 7.5 DF, UNK
     Dates: start: 20140506, end: 20140507
  19. DORMICUM                           /00036201/ [Concomitant]
     Active Substance: NITRAZEPAM
     Dosage: 10 DF, UNK
     Dates: start: 20140501, end: 20140501
  20. DEPAKINE                           /00228502/ [Suspect]
     Active Substance: VALPROATE SODIUM
     Dosage: 3000 DF, UNK
     Route: 065
     Dates: start: 20140501, end: 20140515
  21. TEMESTA                            /00273201/ [Concomitant]
     Active Substance: LORAZEPAM
     Dosage: 5 DF, UNK
     Dates: start: 20140511, end: 20140511
  22. ADASUVE [Concomitant]
     Active Substance: LOXAPINE
     Dosage: 1 DF, UNK
     Dates: start: 20140430, end: 20140501
  23. LOVENOX [Concomitant]
     Active Substance: ENOXAPARIN SODIUM
     Dosage: 40 DF, UNK
     Route: 058
     Dates: start: 20140501, end: 20140519

REACTIONS (2)
  - Confusional state [Recovered/Resolved]
  - Delirium [Recovered/Resolved]

NARRATIVE: CASE EVENT DATE: 20140501
